FAERS Safety Report 26091411 (Version 1)
Quarter: 2025Q4

REPORT INFORMATION
  Report Type: Spontaneous
  Country: US (occurrence: None)
  Receive Date: 20251125
  Receipt Date: 20251125
  Transmission Date: 20260118
  Serious: Yes (Other)
  Sender: FDA-CTU
  Company Number: None

PATIENT
  Age: 29 Month
  Sex: Female

DRUGS (4)
  1. LORBRENA [Suspect]
     Active Substance: LORLATINIB
     Indication: Adrenal gland cancer
     Dosage: TAKE 3 TABLETS BY MOUTH DAILY MONDAY THROUGH SATURDAY AND TAKE 2 TABLETS BY MOUTH ON SUNDAY
     Route: 048
     Dates: start: 20250830
  2. HEPARIN LOCK INJ 1UNIT/ML [Concomitant]
  3. NIVESTYM [Concomitant]
     Active Substance: FILGRASTIM-AAFI
  4. ZIEXTENZO [Concomitant]
     Active Substance: PEGFILGRASTIM-BMEZ

REACTIONS (1)
  - Surgery [None]

NARRATIVE: CASE EVENT DATE: 20251028
